FAERS Safety Report 13375186 (Version 3)
Quarter: 2018Q2

REPORT INFORMATION
  Report Type: Spontaneous
  Country: US (occurrence: US)
  Receive Date: 20170327
  Receipt Date: 20180628
  Transmission Date: 20180711
  Serious: Yes (Other)
  Sender: FDA-Public Use
  Company Number: US-CLOVIS ONCOLOGY-CLO-2017-000139

PATIENT
  Age: 52 Year
  Sex: Female

DRUGS (4)
  1. RUBRACA [Suspect]
     Active Substance: RUCAPARIB CAMSYLATE
     Dosage: 600 MG, BID
     Route: 048
     Dates: start: 20180227, end: 20180305
  2. RUBRACA [Suspect]
     Active Substance: RUCAPARIB CAMSYLATE
     Dosage: 600 MG TWICE DAILY ON DAYS 1-5 AND DAYS 8-12
     Dates: start: 20170217
  3. RUBRACA [Suspect]
     Active Substance: RUCAPARIB CAMSYLATE
     Indication: OVARIAN CANCER
     Dosage: 400 MG, BID
     Route: 048
     Dates: start: 20170217, end: 20180227
  4. RUBRACA [Suspect]
     Active Substance: RUCAPARIB CAMSYLATE
     Dosage: 400 MG, BID
     Route: 048
     Dates: start: 201803

REACTIONS (6)
  - Laboratory test abnormal [Unknown]
  - Prescribed underdose [Unknown]
  - Haemoglobin decreased [Recovered/Resolved]
  - Nausea [Unknown]
  - Dysgeusia [Unknown]
  - White blood cell count decreased [Recovered/Resolved]

NARRATIVE: CASE EVENT DATE: 2017
